FAERS Safety Report 4685630-4 (Version None)
Quarter: 2005Q2

REPORT INFORMATION
  Report Type: 
  Country: None (occurrence: None)
  Receive Date: 20050608
  Receipt Date: 20040930
  Transmission Date: 20051028
  Serious: Yes (Hospitalization, Other)
  Sender: FDA-Public Use
  Company Number: US-MERCK-0410USA00045

PATIENT
  Age: 55 Year
  Sex: Male
  Weight: 109 kg

DRUGS (15)
  1. VIOXX [Suspect]
     Indication: OSTEOARTHRITIS
     Route: 048
     Dates: start: 20001001, end: 20021021
  2. VIOXX [Suspect]
     Route: 048
     Dates: start: 20011126, end: 20021101
  3. VIOXX [Suspect]
     Route: 048
     Dates: end: 20020801
  4. VIOXX [Suspect]
     Route: 048
     Dates: start: 20000525
  5. NAPROXEN [Concomitant]
     Indication: PAIN
     Route: 065
  6. DESYREL [Concomitant]
     Indication: DEPRESSION
     Route: 048
     Dates: end: 20020801
  7. DESYREL [Concomitant]
     Indication: INSOMNIA
     Route: 048
     Dates: end: 20020801
  8. VIAGRA [Concomitant]
     Indication: ERECTILE DYSFUNCTION
     Route: 048
  9. ZOCOR [Concomitant]
     Route: 048
  10. AGGRENOX [Concomitant]
     Route: 048
  11. KLONOPIN [Concomitant]
     Route: 048
  12. CHONDROITIN [Concomitant]
     Route: 065
  13. GLUCOSAMINE [Concomitant]
     Route: 065
  14. TYLENOL SINUS [Concomitant]
     Route: 065
  15. TRAZODONE HYDROCHLORIDE [Concomitant]
     Route: 065

REACTIONS (31)
  - AORTIC ANEURYSM [None]
  - BLOOD CHLORIDE INCREASED [None]
  - BLOOD CHOLESTEROL INCREASED [None]
  - BLOOD TRIGLYCERIDES INCREASED [None]
  - BRONCHITIS [None]
  - CAROTID ARTERY OCCLUSION [None]
  - CAROTID ARTERY STENOSIS [None]
  - CEREBRAL INFARCTION [None]
  - CEREBRAL ISCHAEMIA [None]
  - CEREBROVASCULAR ACCIDENT [None]
  - CHRONIC OBSTRUCTIVE PULMONARY DISEASE [None]
  - CONFUSIONAL STATE [None]
  - DEPRESSION [None]
  - DILATATION ATRIAL [None]
  - DIZZINESS [None]
  - DRUG SCREEN POSITIVE [None]
  - FALL [None]
  - FULL BLOOD COUNT INCREASED [None]
  - HYPERLIPIDAEMIA [None]
  - HYPOAESTHESIA [None]
  - INTERVERTEBRAL DISC DEGENERATION [None]
  - INTERVERTEBRAL DISC PROTRUSION [None]
  - JOINT SWELLING [None]
  - LOW DENSITY LIPOPROTEIN INCREASED [None]
  - MITRAL VALVE INCOMPETENCE [None]
  - NAUSEA [None]
  - RESTLESS LEGS SYNDROME [None]
  - SINUSITIS [None]
  - TRANSIENT ISCHAEMIC ATTACK [None]
  - TRICUSPID VALVE INCOMPETENCE [None]
  - VENTRICULAR HYPERTROPHY [None]
